FAERS Safety Report 11847217 (Version 2)
Quarter: 2017Q3

REPORT INFORMATION
  Report Type: Spontaneous
  Country: US (occurrence: US)
  Receive Date: 20151217
  Receipt Date: 20170810
  Transmission Date: 20171127
  Serious: No
  Sender: FDA-Public Use
  Company Number: US-ROCHE-758850

PATIENT
  Age: 9 Year
  Sex: Female
  Weight: 25.4 kg

DRUGS (2)
  1. TAMIFLU [Suspect]
     Active Substance: OSELTAMIVIR PHOSPHATE
     Indication: INFLUENZA
     Dosage: DOSE: 1 TSP
     Route: 048
     Dates: start: 20110204, end: 20110205
  2. CEFZIL [Concomitant]
     Active Substance: CEFPROZIL
     Indication: EAR INFECTION
     Dosage: DOSE: 1 TSP, STRENGTH: 250/5
     Route: 048
     Dates: start: 20110204, end: 20110217

REACTIONS (3)
  - Hallucination [Unknown]
  - Disorientation [Recovered/Resolved]
  - Emotional disorder [Unknown]

NARRATIVE: CASE EVENT DATE: 20110205
